FAERS Safety Report 7540682-9 (Version None)
Quarter: 2011Q2

REPORT INFORMATION
  Report Type: 
  Country: None (occurrence: None)
  Receive Date: 20110603
  Receipt Date: 20110523
  Transmission Date: 20111010
  Serious: Yes (Other)
  Sender: FDA-Public Use
  Company Number: 2011SP024161

PATIENT
  Age: 39 Year
  Sex: Male

DRUGS (12)
  1. RIZATRIPTAN [Concomitant]
  2. ZOLMITRIPTAN [Concomitant]
  3. TOPIRAMATE [Suspect]
     Indication: MIGRAINE PROPHYLAXIS
     Dosage: QD
  4. DICLOFENAC SODIUM [Concomitant]
  5. ESCITALOPRAM [Concomitant]
  6. AMITRIPTYLINE HCL [Concomitant]
  7. SUMATRIPTAN SUCCINATE [Concomitant]
  8. ALMOTRIPTAN [Concomitant]
  9. MIRTAZAPINE [Suspect]
     Indication: MIGRAINE PROPHYLAXIS
     Dosage: 30 MG; QD
  10. VALPROIC ACID [Suspect]
     Indication: MIGRAINE PROPHYLAXIS
     Dosage: Q12H
  11. PREGABALINE [Concomitant]
  12. DIHYDROERGOTAMINE [Concomitant]

REACTIONS (4)
  - MIGRAINE [None]
  - DRUG ABUSE [None]
  - DEPRESSION [None]
  - OFF LABEL USE [None]
